FAERS Safety Report 5900928-7 (Version None)
Quarter: 2008Q3

REPORT INFORMATION
  Report Type: 
  Country: None (occurrence: None)
  Receive Date: 20080929
  Receipt Date: 20080917
  Transmission Date: 20090109
  Serious: Yes (Other)
  Sender: FDA-Public Use
  Company Number: PHEH2008US08318

PATIENT
  Sex: Female

DRUGS (1)
  1. ZELNORM [Suspect]
     Dosage: UNK
     Dates: start: 20050101, end: 20051213

REACTIONS (3)
  - NERVE INJURY [None]
  - PAIN [None]
  - QUALITY OF LIFE DECREASED [None]
